FAERS Safety Report 8789434 (Version 1)
Quarter: 2012Q4

REPORT INFORMATION
  Report Type: Spontaneous
  Country: IT (occurrence: None)
  Receive Date: 20120906
  Receipt Date: 20120906
  Transmission Date: 20130627
  Serious: Yes (Hospitalization, Other)
  Sender: FDA-Public Use
  Company Number: TIR-01280

PATIENT
  Age: 55 Year
  Sex: Male

DRUGS (5)
  1. LEVOTHYROXINE SODIUM [Suspect]
     Route: 048
  2. LEVOTHYROXINE SODIUM [Suspect]
     Route: 048
  3. SEVELAMER [Suspect]
     Route: 048
  4. RAMIPRIL [Concomitant]
  5. PANTOPRAZOLE [Concomitant]

REACTIONS (8)
  - Drug interaction [None]
  - Hypothyroidism [None]
  - Thrombosis [None]
  - Malaise [None]
  - Constipation [None]
  - Muscular weakness [None]
  - Muscle spasms [None]
  - Insomnia [None]
